FAERS Safety Report 17159563 (Version 1)
Quarter: 2019Q4

REPORT INFORMATION
  Report Type: Spontaneous
  Country: DK (occurrence: DK)
  Receive Date: 20191216
  Receipt Date: 20191216
  Transmission Date: 20200122
  Serious: Yes (Death, Other)
  Sender: FDA-Public Use
  Company Number: NVSC2019DK068929

PATIENT
  Age: 76 Year
  Sex: Female

DRUGS (3)
  1. VERAPAMIL [Suspect]
     Active Substance: VERAPAMIL HYDROCHLORIDE
     Indication: ATRIAL FIBRILLATION
     Dosage: 120 MG, QD
     Route: 065
  2. WARFARIN [Suspect]
     Active Substance: WARFARIN
     Indication: ATRIAL FIBRILLATION
     Dosage: UNK
     Route: 065
  3. METOPROLOL. [Interacting]
     Active Substance: METOPROLOL
     Indication: ATRIAL FIBRILLATION
     Dosage: 50 MG
     Route: 048

REACTIONS (6)
  - Hypotension [Unknown]
  - Condition aggravated [Unknown]
  - Metabolic acidosis [Unknown]
  - Drug interaction [Fatal]
  - Cardiac failure [Fatal]
  - Bradycardia [Unknown]
